FAERS Safety Report 4952640-9 (Version None)
Quarter: 2006Q1

REPORT INFORMATION
  Report Type: 
  Country: None (occurrence: None)
  Receive Date: 20060320
  Receipt Date: 20040702
  Transmission Date: 20060701
  Serious: Yes (Hospitalization, Other)
  Sender: FDA-Public Use
  Company Number: HQ5582903DEC2002

PATIENT
  Age: 75 Year
  Sex: Male
  Weight: 81.1 kg

DRUGS (9)
  1. MYLOTARG [Suspect]
     Indication: ACUTE MYELOID LEUKAEMIA
     Dosage: 18 MG 1X PER 1 DAY, INTRAVENOUS
     Route: 042
     Dates: start: 20021111, end: 20021111
  2. BACTRIM DS [Concomitant]
  3. ALLOPURINOL [Concomitant]
  4. PREVACID [Concomitant]
  5. LISINOPRIL [Concomitant]
  6. MAGNESIUM OXIDE (MAGNESIUM OXIDE) [Concomitant]
  7. MULTIVITAMINS, PLAIN (MULTIVITAMINS, PLAIN) [Concomitant]
  8. CIPROFLOXACIN HCL [Concomitant]
  9. KEFLEX [Concomitant]

REACTIONS (5)
  - CELLULITIS [None]
  - CENTRAL LINE INFECTION [None]
  - FEBRILE NEUTROPENIA [None]
  - PANCYTOPENIA [None]
  - STAPHYLOCOCCAL INFECTION [None]
